FAERS Safety Report 10589251 (Version 2)
Quarter: 2014Q4

REPORT INFORMATION
  Report Type: Spontaneous
  Country: NL (occurrence: NL)
  Receive Date: 20141118
  Receipt Date: 20141203
  Transmission Date: 20150529
  Serious: Yes (Other)
  Sender: FDA-Public Use
  Company Number: NL-BRISTOL-MYERS SQUIBB COMPANY-21585500

PATIENT
  Age: 71 Year
  Sex: Male

DRUGS (1)
  1. YERVOY [Suspect]
     Active Substance: IPILIMUMAB
     Indication: MALIGNANT MELANOMA
     Dosage: STOP DATE:20-JUN-2014
     Route: 042
     Dates: start: 20140509

REACTIONS (2)
  - Uveitis [Unknown]
  - Papillitis [Unknown]
